FAERS Safety Report 5103179-1 (Version None)
Quarter: 2006Q3

REPORT INFORMATION
  Report Type: 
  Country: None (occurrence: None)
  Receive Date: 20060912
  Receipt Date: 20060912
  Transmission Date: 20061208
  Serious: Yes (Other)
  Sender: FDA-Public Use
  Company Number: None

PATIENT
  Age: 54 Year
  Sex: Male

DRUGS (1)
  1. TEQUIN [Suspect]
     Dosage: 400 MG X 1 IV
     Route: 042
     Dates: start: 20060601

REACTIONS (2)
  - INJECTION SITE PRURITUS [None]
  - RASH ERYTHEMATOUS [None]
